FAERS Safety Report 20818061 (Version 1)
Quarter: 2022Q2

REPORT INFORMATION
  Report Type: Spontaneous
  Country: US (occurrence: US)
  Receive Date: 20220512
  Receipt Date: 20220512
  Transmission Date: 20220721
  Serious: No
  Sender: FDA-Public Use
  Company Number: US-PFIZER INC-202101218499

PATIENT
  Age: 62 Year
  Sex: Female
  Weight: 89.36 kg

DRUGS (5)
  1. CYTOMEL [Suspect]
     Active Substance: LIOTHYRONINE SODIUM
     Indication: Hypothyroidism
     Dosage: 3X/DAY (5MCG TABLETS BY MOUTH: DAILY:7.5MCG IN MORNING,2.5MCG MIDDAY,7.5MCG EVENING    )
     Route: 048
     Dates: start: 2002
  2. SERTRALINE [Concomitant]
     Active Substance: SERTRALINE HYDROCHLORIDE
     Indication: Depression
     Dosage: 93.75 MG, DAILY
     Route: 048
     Dates: start: 1996
  3. SERTRALINE [Concomitant]
     Active Substance: SERTRALINE HYDROCHLORIDE
     Dosage: 106.25 MG, DAILY
     Route: 048
  4. CARBOPLATIN [Concomitant]
     Active Substance: CARBOPLATIN
     Dosage: UNK
     Dates: start: 20210715
  5. DOXIL [DICLOXACILLIN SODIUM MONOHYDRATE] [Concomitant]
     Dosage: UNK
     Dates: start: 20210715

REACTIONS (3)
  - Hyperhidrosis [Recovering/Resolving]
  - Hypertension [Recovering/Resolving]
  - Heart rate increased [Recovering/Resolving]

NARRATIVE: CASE EVENT DATE: 20210901
